FAERS Safety Report 6421363-1 (Version None)
Quarter: 2009Q4

REPORT INFORMATION
  Report Type: 
  Country: None (occurrence: None)
  Receive Date: 20091030
  Receipt Date: 20091021
  Transmission Date: 20100525
  Serious: Yes (Hospitalization)
  Sender: FDA-Public Use
  Company Number: US-ALEXION-A200900760

PATIENT
  Sex: Female
  Weight: 90.7 kg

DRUGS (5)
  1. SOLIRIS [Suspect]
     Indication: PAROXYSMAL NOCTURNAL HAEMOGLOBINURIA
     Dosage: 600 MG, Q WEEK
     Route: 042
     Dates: start: 20080507, end: 20080528
  2. SOLIRIS [Suspect]
     Dosage: 900 MG, UNK
     Dates: start: 20080604, end: 20090311
  3. SOLIRIS [Suspect]
     Dosage: UNK
     Dates: start: 20090903, end: 20090903
  4. SOLIRIS [Suspect]
     Dosage: UNK
     Dates: start: 20090812, end: 20090812
  5. PREDNISONE [Concomitant]
     Dosage: 40 MG, QD
     Dates: start: 20080101

REACTIONS (15)
  - ABORTION SPONTANEOUS COMPLETE [None]
  - ACIDOSIS [None]
  - ASPARTATE AMINOTRANSFERASE INCREASED [None]
  - BLOOD BILIRUBIN INCREASED [None]
  - DEPRESSION [None]
  - DIZZINESS [None]
  - DRUG EXPOSURE DURING PREGNANCY [None]
  - FEELING ABNORMAL [None]
  - HAEMATURIA [None]
  - HEADACHE [None]
  - INTRA-UTERINE DEATH [None]
  - NOCTURNAL DYSPNOEA [None]
  - ORTHOPNOEA [None]
  - RETAINED PRODUCTS OF CONCEPTION [None]
  - URINARY TRACT INFECTION [None]
